FAERS Safety Report 11249303 (Version 1)
Quarter: 2015Q3

REPORT INFORMATION
  Report Type: Spontaneous
  Country: US (occurrence: US)
  Receive Date: 20150708
  Receipt Date: 20150708
  Transmission Date: 20151125
  Serious: Yes (Other)
  Sender: FDA-Public Use
  Company Number: US-ELI_LILLY_AND_COMPANY-US200912002805

PATIENT
  Age: 56 Year
  Sex: Male

DRUGS (4)
  1. VITAMIN B12 [Concomitant]
     Active Substance: CYANOCOBALAMIN
  2. DEXAMETHASONE. [Concomitant]
     Active Substance: DEXAMETHASONE
  3. ALIMTA [Suspect]
     Active Substance: PEMETREXED DISODIUM
     Dates: start: 20090422, end: 20090605
  4. FOLIC ACID. [Concomitant]
     Active Substance: FOLIC ACID

REACTIONS (1)
  - Malignant neoplasm progression [Unknown]

NARRATIVE: CASE EVENT DATE: 20090506
